FAERS Safety Report 5367117-9 (Version None)
Quarter: 2007Q2

REPORT INFORMATION
  Report Type: 
  Country: None (occurrence: None)
  Receive Date: 20070622
  Receipt Date: 20060727
  Transmission Date: 20071010
  Serious: No
  Sender: FDA-Public Use
  Company Number: US-BRISTOL-MYERS SQUIBB COMPANY-13416425

PATIENT

DRUGS (1)
  1. SINEMET [Suspect]
     Route: 048

REACTIONS (1)
  - DRUG INEFFECTIVE [None]
